FAERS Safety Report 7381397-X (Version None)
Quarter: 2011Q1

REPORT INFORMATION
  Report Type: 
  Country: None (occurrence: None)
  Receive Date: 20110321
  Receipt Date: 20110304
  Transmission Date: 20110831
  Serious: Yes (Life-Threatening, Hospitalization)
  Sender: FDA-Public Use
  Company Number: 2010001383

PATIENT
  Age: 58 Year
  Sex: Male
  Weight: 50 kg

DRUGS (27)
  1. TAMSULOSIN HYDROCHLORIDE [Concomitant]
  2. CODEINE PHOSPHATE (CODEINE PHOSPHATE) [Concomitant]
  3. BANAN [Concomitant]
  4. MORPHINE [Concomitant]
  5. VALSARTAN [Concomitant]
  6. OMEPRAZOLE [Concomitant]
  7. MS CONTIN [Concomitant]
  8. KENALOG [Concomitant]
  9. ADONA (CARBAZOCHROME SODIUM SULFONATE) [Concomitant]
  10. ERLOTINIB (ERLOTINIB) (TABLET) (ERLOTINIB) [Suspect]
     Indication: LUNG ADENOCARCINOMA
     Dosage: 100 MG, QD, ORAL
     Route: 048
     Dates: start: 20080623, end: 20090508
  11. TAZOCIN (PIP/TAZO) [Concomitant]
  12. PRIMPERAN TAB [Concomitant]
  13. DICLOFENAC (DICLOFENAC) [Concomitant]
  14. AMARYL [Concomitant]
  15. LIPITOR [Concomitant]
  16. PROTECADIN [Concomitant]
  17. GLUCOBAY [Concomitant]
  18. DEPAS (ETIZOLAM) [Concomitant]
  19. UNASYN [Concomitant]
  20. ZOMETA [Concomitant]
  21. TAKEPRON (LANSOPRAZOLE) [Concomitant]
  22. LEVOFLOXACIN [Concomitant]
  23. GARENOXACIN MESILATE (TABLET) [Suspect]
     Indication: BACTERIAL INFECTION
     Dosage: ORAL
     Route: 048
     Dates: start: 20081006, end: 20081009
  24. ZOLPIDEM TARTRATE [Concomitant]
  25. BUP-4 (PROPIVERINE HYDROCHLORIDE) [Concomitant]
  26. KAKKON-TO (KAKKON-TO) [Concomitant]
  27. FENTANYL (FENANYL) [Concomitant]

REACTIONS (16)
  - BACTERIAL INFECTION [None]
  - ECZEMA [None]
  - HAEMOPTYSIS [None]
  - GALLBLADDER DISORDER [None]
  - ARTHRALGIA [None]
  - NEOPLASM MALIGNANT [None]
  - GAMMA-GLUTAMYLTRANSFERASE INCREASED [None]
  - LUNG ADENOCARCINOMA [None]
  - CONJUNCTIVITIS [None]
  - CHOLECYSTITIS CHRONIC [None]
  - HEPATIC FUNCTION ABNORMAL [None]
  - ATROPHY [None]
  - REFLUX OESOPHAGITIS [None]
  - STOMATITIS [None]
  - RASH [None]
  - HEPATIC CANCER METASTATIC [None]
